FAERS Safety Report 16597261 (Version 8)
Quarter: 2024Q2

REPORT INFORMATION
  Report Type: Spontaneous
  Country: US (occurrence: None)
  Receive Date: 20190719
  Receipt Date: 20240404
  Transmission Date: 20240715
  Serious: Yes (Other)
  Sender: FDA-Public Use
  Company Number: US-ROCHE-2358106

PATIENT
  Age: 36 Year
  Sex: Male
  Weight: 93.8 kg

DRUGS (9)
  1. HEMLIBRA [Suspect]
     Active Substance: EMICIZUMAB-KXWH
     Indication: Factor VIII deficiency
     Dosage: STRENGTH: 105 MG/7ML
     Route: 058
     Dates: start: 20190123
  2. HEMLIBRA [Suspect]
     Active Substance: EMICIZUMAB-KXWH
     Dosage: STRENGTH: 105 MG/7ML
     Route: 058
     Dates: start: 201904
  3. HEMLIBRA [Suspect]
     Active Substance: EMICIZUMAB-KXWH
     Dosage: STRENGTH: 105 MG/ML
     Route: 058
     Dates: start: 201904
  4. HEMLIBRA [Suspect]
     Active Substance: EMICIZUMAB-KXWH
     Dosage: FORM STRENGTH: 150 MG/ML
     Route: 058
     Dates: start: 20181120
  5. HEMLIBRA [Suspect]
     Active Substance: EMICIZUMAB-KXWH
     Dosage: FORM STRENGTH: 150 MG/ML
     Route: 058
     Dates: start: 20190801
  6. HEMLIBRA [Suspect]
     Active Substance: EMICIZUMAB-KXWH
     Dosage: STRENGTH: 150 MG/ML
     Route: 058
     Dates: start: 20190426
  7. HEMLIBRA [Suspect]
     Active Substance: EMICIZUMAB-KXWH
     Dosage: SDV 150MG/ML
     Route: 058
     Dates: start: 20181220
  8. HEMLIBRA [Suspect]
     Active Substance: EMICIZUMAB-KXWH
     Dosage: 150 MG/ML
     Route: 058
     Dates: start: 202305
  9. HEMLIBRA [Suspect]
     Active Substance: EMICIZUMAB-KXWH
     Dosage: 60 MG/0.4 ML
     Route: 058
     Dates: start: 202305

REACTIONS (5)
  - Haemorrhage [Recovered/Resolved]
  - Groin pain [Unknown]
  - Muscle haemorrhage [Unknown]
  - Arthralgia [Unknown]
  - Off label use [Unknown]

NARRATIVE: CASE EVENT DATE: 20190801
